FAERS Safety Report 10434286 (Version 1)
Quarter: 2014Q3

REPORT INFORMATION
  Report Type: Spontaneous
  Country: US (occurrence: US)
  Receive Date: 20140905
  Receipt Date: 20140905
  Transmission Date: 20150326
  Serious: Yes (Hospitalization)
  Sender: FDA-Public Use
  Company Number: US-FRI-1000070258

PATIENT
  Sex: Female

DRUGS (8)
  1. WATER PILL NOS [Concomitant]
     Active Substance: UNSPECIFIED INGREDIENT
  2. LYRICA [Concomitant]
     Active Substance: PREGABALIN
     Indication: NEUROPATHY PERIPHERAL
     Dosage: 75 MG PRN
     Dates: start: 2010
  3. INSULIN [Concomitant]
     Active Substance: INSULIN NOS
     Dosage: BID
  4. POTASSIUM [Concomitant]
     Active Substance: POTASSIUM
  5. SAVELLA [Suspect]
     Active Substance: MILNACIPRAN HYDROCHLORIDE
     Indication: NEUROPATHY PERIPHERAL
     Dosage: 100 MG
     Route: 048
  6. BLOOD PRESSURE MEDICATION NOS [Concomitant]
     Active Substance: UNSPECIFIED INGREDIENT
     Indication: HYPERTENSION
  7. CHOLESTEROL MEDICATION NOS [Concomitant]
     Indication: BLOOD CHOLESTEROL INCREASED
  8. VITAMINS NOS [Concomitant]
     Active Substance: VITAMINS

REACTIONS (8)
  - Skin discolouration [Recovering/Resolving]
  - Peripheral swelling [Recovering/Resolving]
  - Weight increased [Recovered/Resolved]
  - Erythema [Unknown]
  - Joint swelling [Recovering/Resolving]
  - Groin pain [Not Recovered/Not Resolved]
  - Skin exfoliation [Recovering/Resolving]
  - Off label use [Not Recovered/Not Resolved]

NARRATIVE: CASE EVENT DATE: 2011
